FAERS Safety Report 5762340-3 (Version None)
Quarter: 2008Q2

REPORT INFORMATION
  Report Type: 
  Country: None (occurrence: None)
  Receive Date: 20080609
  Receipt Date: 20080604
  Transmission Date: 20081010
  Serious: Yes (Life-Threatening)
  Sender: FDA-Public Use
  Company Number: PHHY2008FR09877

PATIENT
  Sex: Female

DRUGS (5)
  1. SYNTOCINON [Suspect]
     Dosage: UNK
     Route: 042
  2. SUFENTANIL CITRATE [Suspect]
     Dosage: UNK
     Route: 042
  3. XYLOCAINE [Suspect]
     Dosage: UNK
     Route: 061
  4. BETADINE [Suspect]
     Dosage: UNK
     Route: 061
  5. NAROPEINE [Suspect]
     Dosage: UNK
     Route: 042

REACTIONS (1)
  - ANGIOEDEMA [None]
